FAERS Safety Report 6589372-X (Version None)
Quarter: 2010Q1

REPORT INFORMATION
  Report Type: 
  Country: None (occurrence: None)
  Receive Date: 20100212
  Receipt Date: 20100127
  Transmission Date: 20100710
  Serious: Yes (Hospitalization)
  Sender: FDA-Public Use
  Company Number: VISP-UK-1001S-0037

PATIENT
  Age: 64 Year
  Sex: Female

DRUGS (4)
  1. VISIPAQUE [Suspect]
     Indication: CORONARY ARTERY DISEASE
     Dosage: SINGLE DOSE, I.A.
     Route: 014
     Dates: start: 20091215, end: 20091215
  2. HEPARIN SODIUM [Suspect]
     Indication: INTRAVENOUS CATHETER MANAGEMENT
     Dosage: I.A.
     Route: 014
     Dates: start: 20091215, end: 20091215
  3. ASPIRIN [Concomitant]
  4. LIDOCAINE [Concomitant]

REACTIONS (5)
  - CEREBROVASCULAR ACCIDENT [None]
  - HEMIPARESIS [None]
  - MEDICAL DEVICE COMPLICATION [None]
  - PRODUCT QUALITY ISSUE [None]
  - THROMBOSIS [None]
